FAERS Safety Report 16652616 (Version 1)
Quarter: 2019Q3

REPORT INFORMATION
  Report Type: Spontaneous
  Country: PL (occurrence: PL)
  Receive Date: 20190731
  Receipt Date: 20190731
  Transmission Date: 20191004
  Serious: Yes (Hospitalization)
  Sender: FDA-Public Use
  Company Number: PHHY2018PL184409

PATIENT
  Age: 65 Year
  Sex: Female

DRUGS (18)
  1. PREGABALIN. [Suspect]
     Active Substance: PREGABALIN
     Dosage: 75 MG, QD
     Route: 065
  2. BUPRENORPHINE. [Suspect]
     Active Substance: BUPRENORPHINE
     Indication: PAIN
     Dosage: 70 UG, QH
     Route: 062
  3. NALOXONE [Suspect]
     Active Substance: NALOXONE
     Indication: PAIN
     Dosage: 2 DF, QD
     Route: 048
  4. TRAMADOL+PARACETAMOL [Suspect]
     Active Substance: ACETAMINOPHEN\TRAMADOL
     Indication: PAIN
     Dosage: 1 DF, UNK (TRAMADOL 37.5 MG + PARACETAMOL 325 MG)
     Route: 065
  5. BUPRENORPHINE. [Suspect]
     Active Substance: BUPRENORPHINE
     Indication: FACIAL PAIN
     Dosage: 150 UG, QH
     Route: 062
  6. MORPHINE [Suspect]
     Active Substance: MORPHINE
     Indication: PAIN
     Dosage: 5 MG, UNK
     Route: 058
  7. PREGABALIN. [Suspect]
     Active Substance: PREGABALIN
     Dosage: 150 MG, QD
     Route: 048
  8. METHOTREXATE. [Concomitant]
     Active Substance: METHOTREXATE
     Indication: PRODUCT USED FOR UNKNOWN INDICATION
     Route: 065
  9. FLUOROURACIL. [Concomitant]
     Active Substance: FLUOROURACIL
     Indication: PRODUCT USED FOR UNKNOWN INDICATION
     Route: 065
  10. BUPRENORPHINE. [Suspect]
     Active Substance: BUPRENORPHINE
     Dosage: UP TO 105 UG, QH
     Route: 062
  11. NALOXONE [Suspect]
     Active Substance: NALOXONE
     Dosage: 1 DF, UNK (NALOXONE 10 MG, OXYCODONE 20 MG)
     Route: 048
  12. PREGABALIN. [Suspect]
     Active Substance: PREGABALIN
     Dosage: 150 MG, Q12H
     Route: 065
  13. NALOXONE [Suspect]
     Active Substance: NALOXONE
     Dosage: 1 DF, Q12H (NALOXONE 5 MG, OXYCODONE 10 MG)
     Route: 048
  14. PREGABALIN. [Suspect]
     Active Substance: PREGABALIN
     Indication: PAIN
     Dosage: 75 MG, Q12H
     Route: 048
  15. MORPHINE [Suspect]
     Active Substance: MORPHINE
     Indication: FACIAL PAIN
     Dosage: 10 MG, UNK
     Route: 058
  16. PREGABALIN. [Suspect]
     Active Substance: PREGABALIN
     Indication: NEURALGIA
     Dosage: 150 MG, Q12H
     Route: 065
  17. PREGABALIN. [Suspect]
     Active Substance: PREGABALIN
     Dosage: 300 MG, QD
     Route: 048
  18. CISPLATIN. [Concomitant]
     Active Substance: CISPLATIN
     Indication: PRODUCT USED FOR UNKNOWN INDICATION
     Route: 065

REACTIONS (7)
  - Increased bronchial secretion [Unknown]
  - Drug ineffective [Unknown]
  - Therapeutic product effect incomplete [Not Recovered/Not Resolved]
  - Constipation [Unknown]
  - Dyspnoea exertional [Unknown]
  - Inadequate analgesia [Not Recovered/Not Resolved]
  - Dysphagia [Unknown]
